FAERS Safety Report 17359777 (Version 2)
Quarter: 2020Q3

REPORT INFORMATION
  Report Type: Spontaneous
  Country: US (occurrence: US)
  Receive Date: 20200203
  Receipt Date: 20200922
  Transmission Date: 20201102
  Serious: Yes (Other)
  Sender: FDA-Public Use
  Company Number: US-GILEAD-2020-0448769

PATIENT
  Age: 44 Year
  Sex: Male
  Weight: 80.73 kg

DRUGS (41)
  1. ISENTRESS [Concomitant]
     Active Substance: RALTEGRAVIR POTASSIUM
  2. TIVICAY [Concomitant]
     Active Substance: DOLUTEGRAVIR SODIUM
  3. NIZORAL [Concomitant]
     Active Substance: KETOCONAZOLE
  4. FOLIC ACID. [Concomitant]
     Active Substance: FOLIC ACID
  5. LEVAQUIN [Concomitant]
     Active Substance: LEVOFLOXACIN
  6. TRAMADOL. [Concomitant]
     Active Substance: TRAMADOL
  7. TRAZODONE [Concomitant]
     Active Substance: TRAZODONE HYDROCHLORIDE
  8. ACYCLOVIR [ACICLOVIR] [Concomitant]
     Active Substance: ACYCLOVIR
  9. DIFLUCAN [Concomitant]
     Active Substance: FLUCONAZOLE
  10. PRAVASTATIN SODIUM. [Concomitant]
     Active Substance: PRAVASTATIN SODIUM
  11. VIAGRA [Concomitant]
     Active Substance: SILDENAFIL CITRATE
  12. ATIVAN [Concomitant]
     Active Substance: LORAZEPAM
  13. AZITHROMYCIN ANHYDROUS. [Concomitant]
     Active Substance: AZITHROMYCIN ANHYDROUS
  14. ESCITALOPRAM OXALATE. [Concomitant]
     Active Substance: ESCITALOPRAM OXALATE
  15. NORCO [Concomitant]
     Active Substance: ACETAMINOPHEN\HYDROCODONE BITARTRATE
  16. TAMSULOSIN [Concomitant]
     Active Substance: TAMSULOSIN
  17. TRICOR [ADENOSINE] [Concomitant]
     Active Substance: ADENOSINE
  18. GENTAMICIN SULFATE. [Concomitant]
     Active Substance: GENTAMICIN SULFATE
  19. NABUMETONE. [Concomitant]
     Active Substance: NABUMETONE
  20. CRESTOR [Concomitant]
     Active Substance: ROSUVASTATIN CALCIUM
  21. FLOVENT [Concomitant]
     Active Substance: FLUTICASONE PROPIONATE
  22. HYDROXYZINE [Concomitant]
     Active Substance: HYDROXYZINE HYDROCHLORIDE
  23. LOVAZA [Concomitant]
     Active Substance: OMEGA-3-ACID ETHYL ESTERS
  24. MEGACE [Concomitant]
     Active Substance: MEGESTROL ACETATE
  25. QVAR [Concomitant]
     Active Substance: BECLOMETHASONE DIPROPIONATE
  26. WELLBUTRIN [Concomitant]
     Active Substance: BUPROPION HYDROCHLORIDE
  27. BUPROPION. [Concomitant]
     Active Substance: BUPROPION
  28. ATRIPLA [Suspect]
     Active Substance: EFAVIRENZ\EMTRICITABINE\TENOFOVIR DISOPROXIL FUMARATE
     Indication: HIV INFECTION
     Dosage: UNK
     Route: 048
     Dates: start: 200801, end: 201805
  29. EPZICOM [Concomitant]
     Active Substance: ABACAVIR SULFATE\LAMIVUDINE
  30. ALBUTEROL [SALBUTAMOL] [Concomitant]
     Active Substance: ALBUTEROL
  31. CIPROFLOXACIN. [Concomitant]
     Active Substance: CIPROFLOXACIN
  32. FLUCONAZOLE. [Concomitant]
     Active Substance: FLUCONAZOLE
  33. LEXAPRO [Concomitant]
     Active Substance: ESCITALOPRAM OXALATE
  34. NAPROSYN [Concomitant]
     Active Substance: NAPROXEN
  35. PRAVASTATIN. [Concomitant]
     Active Substance: PRAVASTATIN
  36. PROAIR HFA [Concomitant]
     Active Substance: ALBUTEROL SULFATE
  37. VENTOLIN HFA [Concomitant]
     Active Substance: ALBUTEROL SULFATE
  38. DESCOVY [Concomitant]
     Active Substance: EMTRICITABINE\TENOFOVIR ALAFENAMIDE FUMARATE
  39. CEFTRIAXONE. [Concomitant]
     Active Substance: CEFTRIAXONE
  40. CYCLOBENZAPRINE. [Concomitant]
     Active Substance: CYCLOBENZAPRINE
  41. STRIBILD [Concomitant]
     Active Substance: COBICISTAT\ELVITEGRAVIR\EMTRICITABINE\TENOFOVIR DISOPROXIL FUMARATE

REACTIONS (10)
  - Economic problem [Not Recovered/Not Resolved]
  - Anxiety [Not Recovered/Not Resolved]
  - Chronic kidney disease [Not Recovered/Not Resolved]
  - Renal injury [Not Recovered/Not Resolved]
  - Pain [Not Recovered/Not Resolved]
  - Emotional distress [Not Recovered/Not Resolved]
  - Renal impairment [Not Recovered/Not Resolved]
  - Anhedonia [Not Recovered/Not Resolved]
  - Blood creatinine increased [Not Recovered/Not Resolved]
  - Depression [Not Recovered/Not Resolved]

NARRATIVE: CASE EVENT DATE: 20171106
